FAERS Safety Report 8080870-9 (Version None)
Quarter: 2012Q1

REPORT INFORMATION
  Report Type: 
  Country: None (occurrence: None)
  Receive Date: 20120130
  Receipt Date: 20120124
  Transmission Date: 20120608
  Serious: Yes (Other)
  Sender: FDA-Public Use
  Company Number: BR-JNJFOC-20120111827

PATIENT
  Age: 46 Year
  Sex: Male

DRUGS (1)
  1. ITRACONAZOLE [Suspect]
     Indication: PARACOCCIDIOIDES INFECTION
     Route: 065

REACTIONS (2)
  - GENERALISED OEDEMA [None]
  - SWELLING [None]
